FAERS Safety Report 24371764 (Version 1)
Quarter: 2024Q3

REPORT INFORMATION
  Report Type: Spontaneous
  Country: GB (occurrence: GB)
  Receive Date: 20240927
  Receipt Date: 20240927
  Transmission Date: 20241017
  Serious: Yes (Hospitalization)
  Sender: JOHNSON AND JOHNSON
  Company Number: GB-CELLTRION INC.-2024GB022803

PATIENT

DRUGS (4)
  1. REMICADE [Suspect]
     Active Substance: INFLIXIMAB
     Indication: Colitis ulcerative
     Dosage: FIRST IV DOSE
     Route: 041
     Dates: start: 20240611
  2. REMICADE [Suspect]
     Active Substance: INFLIXIMAB
     Dosage: 2ND IV DOSE
     Route: 041
     Dates: start: 20240625
  3. REMICADE [Suspect]
     Active Substance: INFLIXIMAB
     Dosage: THIRD IV DOSE
     Route: 041
     Dates: start: 20240723
  4. REMICADE [Suspect]
     Active Substance: INFLIXIMAB
     Route: 041

REACTIONS (3)
  - Abdominal distension [Not Recovered/Not Resolved]
  - Peripheral swelling [Not Recovered/Not Resolved]
  - Oedema peripheral [Not Recovered/Not Resolved]

NARRATIVE: CASE EVENT DATE: 20240612
